FAERS Safety Report 10163473 (Version 1)
Quarter: 2014Q2

REPORT INFORMATION
  Report Type: Spontaneous
  Country: US (occurrence: US)
  Receive Date: 20140509
  Receipt Date: 20140509
  Transmission Date: 20141212
  Serious: Yes (Hospitalization, Other)
  Sender: FDA-Public Use
  Company Number: US-ELI_LILLY_AND_COMPANY-US201405000141

PATIENT
  Sex: Male
  Weight: 86.4 kg

DRUGS (15)
  1. HUMALOG 25% LISPRO, 75% NPL [Suspect]
     Indication: TYPE 2 DIABETES MELLITUS
     Dosage: UNK
     Route: 065
     Dates: start: 2009
  2. CYCLOSPORIN [Concomitant]
     Dosage: 100 MG, BID
  3. ASPIRIN [Concomitant]
     Dosage: 81 MG, BID
  4. ZOFRAN [Concomitant]
     Dosage: 4 MG, UNK
  5. RITALIN [Concomitant]
     Dosage: 5 MG, BID
  6. PROPRANOLOL [Concomitant]
     Dosage: 40 MG, UNK
  7. PANTOPRAZOLE [Concomitant]
     Dosage: 40 MG, UNK
  8. TAMSULOSIN [Concomitant]
     Dosage: 0.4 MG, UNK
  9. PREDNISONE [Concomitant]
     Dosage: 10 MG, UNK
  10. HYDROCODONE [Concomitant]
     Dosage: UNK, PRN
  11. LEVOTHYROXINE [Concomitant]
     Dosage: .125 MG, QOD
  12. FUROSEMIDE [Concomitant]
     Dosage: 20 MG, UNK
  13. VITAMIN D [Concomitant]
  14. NOROXIN [Concomitant]
     Dosage: 2 DF, QD
  15. DIGOXIN [Concomitant]
     Dosage: 125 MG, QOD

REACTIONS (11)
  - Renal failure [Not Recovered/Not Resolved]
  - Fall [Unknown]
  - Rib fracture [Unknown]
  - Cerebrovascular accident [Recovered/Resolved with Sequelae]
  - Feeling abnormal [Unknown]
  - Incorrect dose administered [Unknown]
  - Blood glucose decreased [Unknown]
  - Medication error [Unknown]
  - Thinking abnormal [Not Recovered/Not Resolved]
  - Memory impairment [Not Recovered/Not Resolved]
  - Fall [Unknown]
